FAERS Safety Report 6409782-0 (Version None)
Quarter: 2009Q4

REPORT INFORMATION
  Report Type: 
  Country: None (occurrence: None)
  Receive Date: 20091021
  Receipt Date: 20091021
  Transmission Date: 20100525
  Serious: No
  Sender: FDA-Public Use
  Company Number: None

PATIENT
  Age: 53 Year
  Sex: Male

DRUGS (1)
  1. MORPHINE [Suspect]
     Dosage: 15 MG BID PO
     Route: 048
     Dates: start: 20090608

REACTIONS (5)
  - ALCOHOL USE [None]
  - INCORRECT DOSE ADMINISTERED [None]
  - MENTAL STATUS CHANGES [None]
  - SEDATION [None]
  - SOMNOLENCE [None]
